FAERS Safety Report 12116451 (Version 2)
Quarter: 2017Q2

REPORT INFORMATION
  Report Type: Spontaneous
  Country: US (occurrence: US)
  Receive Date: 20160225
  Receipt Date: 20170423
  Transmission Date: 20170829
  Serious: No
  Sender: FDA-Public Use
  Company Number: US-CELGENEUS-USA-2016025109

PATIENT
  Age: 29 Year
  Sex: Female

DRUGS (2)
  1. OTEZLA [Suspect]
     Active Substance: APREMILAST
     Indication: PSORIASIS
     Route: 048
     Dates: start: 20160218, end: 20160220
  2. CLOBETASOL [Concomitant]
     Active Substance: CLOBETASOL
     Indication: PSORIASIS
     Route: 065
     Dates: start: 2013, end: 201602

REACTIONS (1)
  - Pelvic pain [Recovered/Resolved]

NARRATIVE: CASE EVENT DATE: 20160220
